FAERS Safety Report 4397602-8 (Version None)
Quarter: 2004Q3

REPORT INFORMATION
  Report Type: 
  Country: None (occurrence: None)
  Receive Date: 20040712
  Receipt Date: 20000918
  Transmission Date: 20050211
  Serious: Yes (Hospitalization, Other)
  Sender: FDA-Public Use
  Company Number: US_001154126

PATIENT
  Age: 12 Year
  Sex: Female

DRUGS (1)
  1. SOMATROPIN [Suspect]
     Indication: GROWTH HORMONE DEFICIENCY
     Dosage: 0.175 MG/KG WEEK
     Dates: start: 19930801, end: 19990505

REACTIONS (3)
  - APLASTIC ANAEMIA [None]
  - BONE MARROW DEPRESSION [None]
  - TRISOMY 8 [None]
